FAERS Safety Report 5487729-1 (Version None)
Quarter: 2007Q4

REPORT INFORMATION
  Report Type: 
  Country: None (occurrence: None)
  Receive Date: 20071001
  Receipt Date: 20070613
  Transmission Date: 20080405
  Serious: Yes (Other)
  Sender: FDA-Public Use
  Company Number: T200700689

PATIENT
  Age: 16 Year
  Sex: Female
  Weight: 114.3 kg

DRUGS (11)
  1. PAMELOR [Suspect]
     Indication: DEPRESSION
     Dosage: 25 MG, QD, ORAL; 50 MG,QD, ORAL; 25 MG
     Route: 048
     Dates: start: 20020101, end: 20020101
  2. PAMELOR [Suspect]
     Indication: MIGRAINE
     Dosage: 25 MG, QD, ORAL; 50 MG,QD, ORAL; 25 MG
     Route: 048
     Dates: start: 20020101, end: 20020101
  3. PAMELOR [Suspect]
     Indication: DEPRESSION
     Dosage: 25 MG, QD, ORAL; 50 MG,QD, ORAL; 25 MG
     Route: 048
     Dates: start: 20020101, end: 20020101
  4. PAMELOR [Suspect]
     Indication: MIGRAINE
     Dosage: 25 MG, QD, ORAL; 50 MG,QD, ORAL; 25 MG
     Route: 048
     Dates: start: 20020101, end: 20020101
  5. PAMELOR [Suspect]
     Indication: DEPRESSION
     Dosage: 25 MG, QD, ORAL; 50 MG,QD, ORAL; 25 MG
     Route: 048
     Dates: start: 20031101, end: 20070101
  6. PAMELOR [Suspect]
     Indication: MIGRAINE
     Dosage: 25 MG, QD, ORAL; 50 MG,QD, ORAL; 25 MG
     Route: 048
     Dates: start: 20031101, end: 20070101
  7. ELAVIL [Suspect]
     Indication: DEPRESSION
     Dosage: 25 MG
     Dates: start: 20070212
  8. ELAVIL [Suspect]
     Indication: INSOMNIA
     Dosage: 25 MG
     Dates: start: 20070212
  9. WELLBUTRIN                                          (BUPROPION) TABLET [Suspect]
     Dosage: 150 MG, BID
     Dates: start: 20070312, end: 20070427
  10. ACETAMINOPHEN [Concomitant]
  11. ADVIL [Concomitant]

REACTIONS (1)
  - GRAND MAL CONVULSION [None]
